FAERS Safety Report 24141939 (Version 1)
Quarter: 2024Q3

REPORT INFORMATION
  Report Type: Report from Study
  Country: US (occurrence: US)
  Receive Date: 20240726
  Receipt Date: 20240726
  Transmission Date: 20241017
  Serious: Yes (Other)
  Sender: ABBVIE
  Company Number: US-ABBVIE-5850761

PATIENT
  Sex: Female

DRUGS (1)
  1. SKYRIZI [Suspect]
     Active Substance: RISANKIZUMAB-RZAA
     Indication: Crohn^s disease
     Route: 058
     Dates: start: 20231227

REACTIONS (6)
  - Intestinal operation [Unknown]
  - Short-bowel syndrome [Unknown]
  - Malabsorption [Unknown]
  - Osteoporosis [Unknown]
  - Spinal stenosis [Unknown]
  - Chronic kidney disease [Unknown]
